FAERS Safety Report 8963126 (Version 1)
Quarter: 2012Q4

REPORT INFORMATION
  Report Type: 
  Country: CH (occurrence: CH)
  Receive Date: 20121214
  Receipt Date: 20121214
  Transmission Date: 20130627
  Serious: Yes (Death)
  Sender: FDA-Public Use
  Company Number: CH-JNJFOC-20121203817

PATIENT

DRUGS (5)
  1. DOXORUBICIN HYDROCHLORIDE (CAELYX) [Suspect]
     Indication: HEAD AND NECK CANCER
     Dosage: 50 mg once every 4 weeks for 2 cycles
     Route: 042
  2. ERBITUX [Suspect]
     Indication: HEAD AND NECK CANCER
     Dosage: 0.36 % of the 250 mg/ m2
     Route: 042
  3. GLUCOSE [Concomitant]
     Dosage: 250 mL of 5% glucose (500 mL for doses }/-50 mg/m2) and infused the drug for 60 minute
     Route: 042
  4. TROPISETRON [Concomitant]
     Indication: PROPHYLAXIS
     Dosage: on day 1
     Route: 048
  5. DEXAMETHASONE [Concomitant]
     Indication: PROPHYLAXIS
     Dosage: on days 1-5
     Route: 048

REACTIONS (2)
  - Pharyngeal haemorrhage [Fatal]
  - Off label use [Recovered/Resolved]
